FAERS Safety Report 7426408-8 (Version None)
Quarter: 2011Q2

REPORT INFORMATION
  Report Type: 
  Country: None (occurrence: None)
  Receive Date: 20110420
  Receipt Date: 20110414
  Transmission Date: 20111010
  Serious: Yes (Other)
  Sender: FDA-Public Use
  Company Number: JP-PFIZER INC-2011082613

PATIENT
  Sex: Male

DRUGS (3)
  1. SIGMART [Concomitant]
  2. BLOPRESS [Concomitant]
  3. VIAGRA [Suspect]
     Indication: ERECTILE DYSFUNCTION
     Dosage: UNK
     Dates: start: 20080101

REACTIONS (2)
  - ELECTROCARDIOGRAM ABNORMAL [None]
  - OXYGEN SATURATION DECREASED [None]
